FAERS Safety Report 7709884-2 (Version None)
Quarter: 2011Q3

REPORT INFORMATION
  Report Type: 
  Country: None (occurrence: None)
  Receive Date: 20110825
  Receipt Date: 20110815
  Transmission Date: 20111222
  Serious: Yes (Death)
  Sender: FDA-Public Use
  Company Number: BR-ACTELION-A-CH2011-53032

PATIENT

DRUGS (1)
  1. TRACLEER [Suspect]
     Indication: PRODUCT USED FOR UNKNOWN INDICATION
     Route: 048

REACTIONS (2)
  - DEATH [None]
  - CATHETERISATION CARDIAC [None]
